FAERS Safety Report 13579973 (Version 1)
Quarter: 2017Q2

REPORT INFORMATION
  Report Type: Spontaneous
  Country: US (occurrence: US)
  Receive Date: 20170524
  Receipt Date: 20170524
  Transmission Date: 20170830
  Serious: No
  Sender: FDA-Public Use
  Company Number: None

PATIENT
  Age: 66 Year
  Sex: Female

DRUGS (1)
  1. NINLARO [Suspect]
     Active Substance: IXAZOMIB
     Dosage: 4MG 1 CAP ON DA 1, 8 + 15 BY MOUTH
     Route: 048
     Dates: start: 20170208

REACTIONS (2)
  - Headache [None]
  - Swelling [None]

NARRATIVE: CASE EVENT DATE: 20170306
